FAERS Safety Report 14477800 (Version 1)
Quarter: 2018Q1

REPORT INFORMATION
  Report Type: Report from Study
  Country: US (occurrence: US)
  Receive Date: 20180201
  Receipt Date: 20180201
  Transmission Date: 20180509
  Serious: No
  Sender: FDA-Public Use
  Company Number: US-EXELIXIS-CABO-17008551

PATIENT
  Sex: Male
  Weight: 81.65 kg

DRUGS (4)
  1. POTASSIUM [Concomitant]
     Active Substance: POTASSIUM
  2. DRONABINOL. [Concomitant]
     Active Substance: DRONABINOL
  3. COMETRIQ [Suspect]
     Active Substance: CABOZANTINIB S-MALATE
     Indication: RENAL CANCER
     Dosage: 60 MG, QD
     Route: 048
     Dates: start: 20170114
  4. LASIX [Concomitant]
     Active Substance: FUROSEMIDE

REACTIONS (6)
  - Constipation [Not Recovered/Not Resolved]
  - Oral pain [Recovering/Resolving]
  - Off label use [Unknown]
  - Glossodynia [Recovering/Resolving]
  - Weight increased [Unknown]
  - Diarrhoea [Unknown]
